FAERS Safety Report 14806127 (Version 1)
Quarter: 2018Q2

REPORT INFORMATION
  Report Type: Spontaneous
  Country: US (occurrence: US)
  Receive Date: 20180425
  Receipt Date: 20180425
  Transmission Date: 20180711
  Serious: No
  Sender: FDA-Public Use
  Company Number: US-SHIRE-US201815666

PATIENT
  Age: 71 Year
  Sex: Male

DRUGS (3)
  1. XIIDRA [Suspect]
     Active Substance: LIFITEGRAST
     Indication: DRY EYE
     Dosage: ONE DROP IN EACH EYE EVERY 12 HOURS
     Route: 047
     Dates: start: 20180416
  2. COSOPT [Concomitant]
     Active Substance: DORZOLAMIDE HYDROCHLORIDE\TIMOLOL MALEATE
     Indication: PRODUCT USED FOR UNKNOWN INDICATION
  3. ZIOPTAN [Concomitant]
     Active Substance: TAFLUPROST
     Indication: PRODUCT USED FOR UNKNOWN INDICATION

REACTIONS (4)
  - Lacrimation increased [Not Recovered/Not Resolved]
  - Photophobia [Not Recovered/Not Resolved]
  - Eye pain [Not Recovered/Not Resolved]
  - Instillation site pain [Not Recovered/Not Resolved]

NARRATIVE: CASE EVENT DATE: 20180420
